FAERS Safety Report 5067143-3 (Version None)
Quarter: 2006Q3

REPORT INFORMATION
  Report Type: 
  Country: None (occurrence: None)
  Receive Date: 20060727
  Receipt Date: 20060614
  Transmission Date: 20061208
  Serious: Yes (Other)
  Sender: FDA-Public Use
  Company Number: 2006066332

PATIENT
  Age: 18 Year
  Sex: Male

DRUGS (1)
  1. DETROL LA [Suspect]
     Indication: URINARY INCONTINENCE

REACTIONS (5)
  - ANXIETY [None]
  - CHEST PAIN [None]
  - DRUG INEFFECTIVE [None]
  - HYPERTENSION [None]
  - LIVER DISORDER [None]
